FAERS Safety Report 15751270 (Version 2)
Quarter: 2018Q4

REPORT INFORMATION
  Report Type: Spontaneous
  Country: US (occurrence: US)
  Receive Date: 20181221
  Receipt Date: 20181226
  Transmission Date: 20190205
  Serious: Yes (Other)
  Sender: FDA-Public Use
  Company Number: US-PFIZER INC-2018518476

PATIENT
  Age: 76 Year
  Sex: Female
  Weight: 77.98 kg

DRUGS (2)
  1. PANTOPRAZOLE [Suspect]
     Active Substance: PANTOPRAZOLE
     Dosage: UNK (TAKES IT A FEWTIMES A WEEK)
  2. PANTOPRAZOLE [Suspect]
     Active Substance: PANTOPRAZOLE
     Indication: GASTROOESOPHAGEAL REFLUX DISEASE
     Dosage: 40 MG, 1X/DAY

REACTIONS (8)
  - Urinary tract infection [Not Recovered/Not Resolved]
  - Migraine [Unknown]
  - Polyp [Unknown]
  - Choking [Unknown]
  - Throat irritation [Unknown]
  - Gastric polyps [Unknown]
  - Intentional product misuse [Unknown]
  - Gastrointestinal disorder [Unknown]

NARRATIVE: CASE EVENT DATE: 201811
